FAERS Safety Report 20791052 (Version 2)
Quarter: 2022Q2

REPORT INFORMATION
  Report Type: Report from Study
  Country: BR (occurrence: BR)
  Receive Date: 20220505
  Receipt Date: 20220506
  Transmission Date: 20220720
  Serious: Yes (Other)
  Sender: FDA-Public Use
  Company Number: BR-JNJFOC-20220455690

PATIENT
  Age: 26 Year
  Sex: Female
  Weight: 68 kg

DRUGS (5)
  1. SIMPONI [Suspect]
     Active Substance: GOLIMUMAB
     Indication: Rheumatoid arthritis
     Route: 058
     Dates: start: 2021
  2. SIMPONI [Suspect]
     Active Substance: GOLIMUMAB
     Dosage: 1 VIAL
     Route: 058
  3. PREDNISONE [Concomitant]
     Active Substance: PREDNISONE
  4. HYDROXYCHLOROQUINE [Concomitant]
     Active Substance: HYDROXYCHLOROQUINE
  5. METHOTREXATE [Concomitant]
     Active Substance: METHOTREXATE

REACTIONS (6)
  - Angioedema [Unknown]
  - Rheumatoid arthritis [Not Recovered/Not Resolved]
  - Pharyngitis [Unknown]
  - Product dose omission issue [Unknown]
  - Off label use [Unknown]
  - Product use issue [Unknown]
